FAERS Safety Report 8775223 (Version 1)
Quarter: 2012Q4

REPORT INFORMATION
  Report Type: 
  Country: FR (occurrence: FR)
  Receive Date: 20120910
  Receipt Date: 20120910
  Transmission Date: 20130627
  Serious: Yes (Life-Threatening)
  Sender: FDA-Public Use
  Company Number: FR-ROCHE-1118456

PATIENT
  Age: 64 Year
  Sex: Female

DRUGS (6)
  1. VALCYTE [Suspect]
     Indication: PRODUCT USED FOR UNKNOWN INDICATION
     Route: 048
  2. ROVALCYTE [Suspect]
     Route: 048
     Dates: start: 20120806, end: 20120817
  3. MYFORTIC [Suspect]
     Indication: PRODUCT USED FOR UNKNOWN INDICATION
     Route: 048
     Dates: end: 20120725
  4. MYFORTIC [Suspect]
     Route: 048
     Dates: start: 20120801
  5. CARDENSIEL [Suspect]
     Indication: PRODUCT USED FOR UNKNOWN INDICATION
     Route: 048
  6. CARDENSIEL [Suspect]
     Route: 048
     Dates: start: 20120806

REACTIONS (1)
  - Agranulocytosis [Recovered/Resolved]
